FAERS Safety Report 12930848 (Version 3)
Quarter: 2017Q1

REPORT INFORMATION
  Report Type: Spontaneous
  Country: SE (occurrence: SE)
  Receive Date: 20161110
  Receipt Date: 20170106
  Transmission Date: 20170428
  Serious: Yes (Other)
  Sender: FDA-Public Use
  Company Number: SE-ENDO PHARMACEUTICALS INC.-2016-006587

PATIENT
  Age: 66 Year
  Sex: Male

DRUGS (8)
  1. AVEED [Suspect]
     Active Substance: TESTOSTERONE UNDECANOATE
     Indication: PRODUCT USED FOR UNKNOWN INDICATION
     Route: 065
     Dates: start: 20161017, end: 2016
  2. AVEED [Suspect]
     Active Substance: TESTOSTERONE UNDECANOATE
     Route: 065
     Dates: start: 20161201
  3. TESTOGEL [Suspect]
     Active Substance: TESTOSTERONE
     Indication: BLOOD TESTOSTERONE DECREASED
     Route: 065
     Dates: start: 20160721
  4. ENALAPRIL [Concomitant]
     Active Substance: ENALAPRIL
     Indication: BLOOD PRESSURE MANAGEMENT
     Route: 065
  5. SERETIDE [Concomitant]
     Active Substance: FLUTICASONE PROPIONATE\SALMETEROL XINAFOATE
     Indication: CHRONIC OBSTRUCTIVE PULMONARY DISEASE
     Route: 065
  6. ANTIDEPRESSANTS [Concomitant]
     Active Substance: UNSPECIFIED INGREDIENT
     Indication: DEPRESSION
     Route: 065
  7. SERETIDE [Concomitant]
     Active Substance: FLUTICASONE PROPIONATE\SALMETEROL XINAFOATE
     Indication: ASTHMA
  8. UNCODEABLE INVESTIGATIONAL DRUG [Concomitant]
     Indication: CHRONIC OBSTRUCTIVE PULMONARY DISEASE
     Route: 065

REACTIONS (7)
  - Drug ineffective [Unknown]
  - Depression [Unknown]
  - Blood testosterone decreased [Unknown]
  - Depressed mood [Unknown]
  - Mental impairment [Not Recovered/Not Resolved]
  - Anxiety [Unknown]
  - Painful erection [Recovered/Resolved]

NARRATIVE: CASE EVENT DATE: 2016
